FAERS Safety Report 15766543 (Version 1)
Quarter: 2018Q4

REPORT INFORMATION
  Report Type: Spontaneous
  Country: IT (occurrence: IT)
  Receive Date: 20181227
  Receipt Date: 20181227
  Transmission Date: 20190205
  Serious: Yes (Life-Threatening, Hospitalization, Disabling)
  Sender: FDA-Public Use
  Company Number: IT-MYLANLABS-2018M1094790

PATIENT
  Age: 63 Year
  Sex: Male

DRUGS (12)
  1. ATROPINE. [Concomitant]
     Active Substance: ATROPINE
     Indication: KERATITIS FUNGAL
     Route: 061
  2. OFLOXACIN. [Concomitant]
     Active Substance: OFLOXACIN
     Dosage: UNK
     Route: 065
  3. BETAMETHASONE W/CHLORAMPHENICOL [Suspect]
     Active Substance: BETAMETHASONE\CHLORAMPHENICOL
     Indication: KERATITIS FUNGAL
     Route: 061
  4. ATROPINE. [Concomitant]
     Active Substance: ATROPINE
     Dosage: EMPIRICAL THERAPY
     Route: 065
  5. CIPROFLOXACIN. [Concomitant]
     Active Substance: CIPROFLOXACIN
     Indication: KERATITIS FUNGAL
     Dosage: FOR 6 DAYS
     Route: 048
  6. NETILMICIN [Concomitant]
     Active Substance: NETILMICIN
     Indication: KERATITIS FUNGAL
     Route: 061
  7. PREDNISONE. [Suspect]
     Active Substance: PREDNISONE
     Indication: KERATITIS FUNGAL
     Dosage: SYSTEMIC
     Route: 065
  8. DEXAMETHASONE;NETILMICIN [Suspect]
     Active Substance: DEXAMETHASONE\NETILMICIN
     Indication: KERATITIS FUNGAL
     Route: 061
  9. OFLOXACIN. [Concomitant]
     Active Substance: OFLOXACIN
     Indication: KERATITIS FUNGAL
     Dosage: 1 GTT DROPS, Q4H
     Route: 061
  10. GENTAMICIN. [Concomitant]
     Active Substance: GENTAMICIN
     Indication: KERATITIS FUNGAL
     Route: 061
  11. DEXAMETHASONE. [Suspect]
     Active Substance: DEXAMETHASONE
     Indication: KERATITIS FUNGAL
     Route: 065
  12. CEFTRIAXONE. [Concomitant]
     Active Substance: CEFTRIAXONE
     Indication: KERATITIS FUNGAL
     Route: 042

REACTIONS (9)
  - Glaucoma [Unknown]
  - Visual acuity reduced [Unknown]
  - Condition aggravated [Unknown]
  - Graft infection [Unknown]
  - Keratitis fungal [Unknown]
  - Iris disorder [Recovered/Resolved with Sequelae]
  - Corneal oedema [Unknown]
  - Infarction [Unknown]
  - Necrosis [Recovered/Resolved with Sequelae]
